FAERS Safety Report 5939566-9 (Version None)
Quarter: 2008Q4

REPORT INFORMATION
  Report Type: 
  Country: None (occurrence: None)
  Receive Date: 20081030
  Receipt Date: 20081020
  Transmission Date: 20090506
  Serious: Yes (Hospitalization, Other)
  Sender: FDA-Public Use
  Company Number: 100#08#2008-05360

PATIENT
  Age: 27 Year
  Sex: Female

DRUGS (2)
  1. PHENYTOIN [Suspect]
     Indication: CONVULSION
     Dosage: 100 MG THRICE DAILY, AFTER AN INITIAL LOADING DOSE OF 18 MG/KG
  2. ACENOCOUMAROL (ACENOCOUMAROL) [Suspect]
     Indication: ANTICOAGULANT THERAPY
     Dosage: 0.5 MG ONCE DAILY

REACTIONS (7)
  - ANTICONVULSANT DRUG LEVEL ABOVE THERAPEUTIC [None]
  - DIZZINESS [None]
  - DRUG EXPOSURE DURING PREGNANCY [None]
  - DRUG INTERACTION [None]
  - DRUG TOXICITY [None]
  - INTERNATIONAL NORMALISED RATIO INCREASED [None]
  - VOMITING [None]
